FAERS Safety Report 4478974-2 (Version None)
Quarter: 2004Q4

REPORT INFORMATION
  Report Type: 
  Country: None (occurrence: None)
  Receive Date: 20041015
  Receipt Date: 20041001
  Transmission Date: 20050328
  Serious: Yes (Hospitalization)
  Sender: FDA-Public Use
  Company Number: HQWYE753801SEP04

PATIENT
  Age: 72 Year
  Sex: Male

DRUGS (2)
  1. ANCARON (AMIODARONE, TABLET) [Suspect]
     Indication: VENTRICULAR TACHYCARDIA
     Dosage: 100 MG 2X PER 1 DAY
     Route: 048
     Dates: start: 20040728, end: 20040802
  2. ANCARON (AMIODARONE, TABLET) [Suspect]
     Indication: VENTRICULAR TACHYCARDIA
     Dosage: 100 MG 2X PER 1 DAY
     Route: 048
     Dates: start: 20040804, end: 20040807

REACTIONS (2)
  - HEPATIC FUNCTION ABNORMAL [None]
  - VENTRICULAR FIBRILLATION [None]
